FAERS Safety Report 9182132 (Version 2)
Quarter: 2013Q2

REPORT INFORMATION
  Report Type: Report from Study
  Country: JP (occurrence: JP)
  Receive Date: 20121030
  Receipt Date: 20130513
  Transmission Date: 20140414
  Serious: Yes (Hospitalization)
  Sender: FDA-Public Use
  Company Number: JP-009507513-1210JPN012071

PATIENT
  Age: 44 Year
  Sex: Male
  Weight: 88 kg

DRUGS (10)
  1. PEGINTRON [Suspect]
     Indication: CHRONIC HEPATITIS C
     Dosage: 1.5 MICROGRAM PER KILOGRAM, QW
     Route: 058
     Dates: start: 20120405, end: 20120713
  2. PEGINTRON [Suspect]
     Dosage: 1.125 MICROGRAM PER KILOGRAM, QW
     Route: 058
     Dates: start: 20120720, end: 20120720
  3. PEGINTRON [Suspect]
     Dosage: 1.5 MICROGRAM PER KILOGRAM, QW
     Route: 058
     Dates: start: 20120727, end: 20120727
  4. PEGINTRON [Suspect]
     Dosage: 1.125 MICROGRAM PER KILOGRAM, QW
     Route: 058
     Dates: start: 20120803, end: 20120803
  5. REBETOL [Suspect]
     Indication: CHRONIC HEPATITIS C
     Dosage: 1000 MG, QD
     Route: 048
     Dates: start: 20120405, end: 20120809
  6. TELAVIC [Suspect]
     Indication: CHRONIC HEPATITIS C
     Dosage: 2250 MG, QD
     Route: 048
     Dates: start: 20120405, end: 20120614
  7. TELAVIC [Suspect]
     Dosage: 1500 MG, QD,
     Route: 048
     Dates: start: 20120615, end: 20120628
  8. CEFCAPENE PIVOXIL HYDROCHLORIDE [Concomitant]
     Indication: DERMAL CYST
     Dosage: 300 MG, QD
     Route: 048
     Dates: start: 20120605, end: 20120611
  9. ESPO [Concomitant]
     Indication: PROPHYLAXIS
     Dosage: 12000 UNIT, AS NEEDED
     Route: 058
     Dates: start: 20120803, end: 20120803
  10. ESPO [Concomitant]
     Dosage: 24000 UNIT, 1 VIAL/DAY AS NEEDED
     Route: 058
     Dates: start: 20120426, end: 20120727

REACTIONS (2)
  - Pyelonephritis [Recovering/Resolving]
  - Sepsis [Recovering/Resolving]
